FAERS Safety Report 16184548 (Version 1)
Quarter: 2019Q2

REPORT INFORMATION
  Report Type: Spontaneous
  Country: US (occurrence: US)
  Receive Date: 20190410
  Receipt Date: 20190410
  Transmission Date: 20190711
  Serious: Yes (Other)
  Sender: FDA-Public Use
  Company Number: None

PATIENT
  Age: 56 Year
  Sex: Female
  Weight: 71.1 kg

DRUGS (1)
  1. VASCEPA [Suspect]
     Active Substance: ICOSAPENT ETHYL
     Indication: HYPERLIPIDAEMIA
     Dosage: ?          QUANTITY:4 CAPSULE(S);?
     Route: 048

REACTIONS (4)
  - Sinus congestion [None]
  - Throat irritation [None]
  - Pneumonia [None]
  - Condition aggravated [None]

NARRATIVE: CASE EVENT DATE: 20181106
